FAERS Safety Report 6709683-4 (Version None)
Quarter: 2010Q2

REPORT INFORMATION
  Report Type: 
  Country: None (occurrence: None)
  Receive Date: 20100504
  Receipt Date: 20100423
  Transmission Date: 20101027
  Serious: Yes (Death)
  Sender: FDA-Public Use
  Company Number: AT-PURDUE-DEU-2009-0005685

PATIENT
  Age: 19 Year
  Sex: Male

DRUGS (2)
  1. MORPHINE [Suspect]
     Indication: DRUG ABUSE
     Dosage: UNK
     Route: 042
     Dates: start: 20091001
  2. FLUNITRAZEPAM [Suspect]
     Indication: DRUG ABUSE
     Dosage: UNK
     Route: 065
     Dates: start: 20091001

REACTIONS (8)
  - ASPIRATION [None]
  - BRAIN OEDEMA [None]
  - CARDIOMEGALY [None]
  - DRUG ABUSE [None]
  - DRUG TOXICITY [None]
  - MULTIPLE DRUG OVERDOSE [None]
  - PULMONARY HAEMORRHAGE [None]
  - PULMONARY OEDEMA [None]
